FAERS Safety Report 10610527 (Version 1)
Quarter: 2014Q4

REPORT INFORMATION
  Report Type: Spontaneous
  Country: DK (occurrence: DE)
  Receive Date: 20141126
  Receipt Date: 20141126
  Transmission Date: 20150529
  Serious: Yes (Other)
  Sender: FDA-Public Use
  Company Number: DE-FRI-1000072679

PATIENT
  Age: 30 Year
  Sex: Female
  Weight: 98 kg

DRUGS (1)
  1. CITALOPRAM [Suspect]
     Active Substance: CITALOPRAM HYDROBROMIDE
     Indication: DEPRESSION
     Dosage: 30 MG
     Route: 048
     Dates: start: 20130929, end: 20140530

REACTIONS (2)
  - Pre-eclampsia [Unknown]
  - Caesarean section [Unknown]

NARRATIVE: CASE EVENT DATE: 20140530
